FAERS Safety Report 8792533 (Version 2)
Quarter: 2012Q4

REPORT INFORMATION
  Report Type: 
  Country: JP (occurrence: JP)
  Receive Date: 20120918
  Receipt Date: 20121203
  Transmission Date: 20130627
  Serious: Yes (Hospitalization)
  Sender: FDA-Public Use
  Company Number: JP-ASTRAZENECA-2012SE72311

PATIENT
  Age: 85 Year
  Sex: Male
  Weight: 44 kg

DRUGS (1)
  1. BLOPRESS [Suspect]
     Indication: HYPERTENSION
     Route: 048
     Dates: start: 20120309, end: 20120423

REACTIONS (1)
  - Duodenal ulcer [Recovered/Resolved]
